FAERS Safety Report 16345698 (Version 1)
Quarter: 2019Q2

REPORT INFORMATION
  Report Type: Spontaneous
  Country: FR (occurrence: FR)
  Receive Date: 20190523
  Receipt Date: 20190523
  Transmission Date: 20190711
  Serious: Yes (Other)
  Sender: FDA-Public Use
  Company Number: FR-TEVA-2019-FR-1052408

PATIENT
  Age: 87 Year
  Sex: Female
  Weight: 51 kg

DRUGS (7)
  1. NORSET 15 MG, COMPRIM? ORODISPERSIBLE [Concomitant]
     Dosage: 15 MILLIGRAM DAILY;
     Route: 048
  2. CRESTOR [Concomitant]
     Active Substance: ROSUVASTATIN CALCIUM
     Dosage: 5 MILLIGRAM DAILY;
     Route: 048
  3. UVEDOSE [Concomitant]
     Active Substance: CHOLECALCIFEROL
     Route: 048
  4. MEMANTINE (CHLORHYDRATE DE) [Suspect]
     Active Substance: MEMANTINE HYDROCHLORIDE
     Indication: DEMENTIA ALZHEIMER^S TYPE
     Dosage: UNKNOWN
     Route: 048
     Dates: start: 20190121
  5. IPERTEN 20 MG, COMPRIM? [Concomitant]
     Dosage: 20 MILLIGRAM DAILY; UNKNOWN
     Route: 048
  6. ELIQUIS [Concomitant]
     Active Substance: APIXABAN
     Dosage: 5 MILLIGRAM DAILY;
     Route: 048
  7. TEMERITDUO 5 MG/25 MG, COMPRIM? PELLICUL? [Concomitant]
     Active Substance: HYDROCHLOROTHIAZIDE\NEBIVOLOL HYDROCHLORIDE
     Dosage: 1 DOSAGE FORMS DAILY;
     Route: 048

REACTIONS (6)
  - Delirium [Recovered/Resolved]
  - Hallucination, visual [Recovered/Resolved]
  - Chills [Recovered/Resolved]
  - Headache [Recovered/Resolved]
  - Somnolence [Recovered/Resolved]
  - Condition aggravated [Recovered/Resolved]

NARRATIVE: CASE EVENT DATE: 201901
